FAERS Safety Report 19509442 (Version 3)
Quarter: 2021Q3

REPORT INFORMATION
  Report Type: Other
  Country: US (occurrence: US)
  Receive Date: 20210709
  Receipt Date: 20210818
  Transmission Date: 20211014
  Serious: No
  Sender: FDA-Public Use
  Company Number: US-NEUROCRINE BIOSCIENCES INC.-2021NBI03429

PATIENT

DRUGS (15)
  1. ISOSORBIDE. [Concomitant]
     Active Substance: ISOSORBIDE
     Indication: PRODUCT USED FOR UNKNOWN INDICATION
     Dosage: UNK
     Route: 048
  2. SELEGILINE [Concomitant]
     Active Substance: SELEGILINE
     Dosage: UNK
     Route: 065
  3. ASPIRIN (E.C.) [Concomitant]
     Active Substance: ASPIRIN
     Dosage: UNK
     Route: 048
  4. DOCUSATE [Concomitant]
     Active Substance: DOCUSATE
     Indication: PRODUCT USED FOR UNKNOWN INDICATION
     Dosage: UNK
     Route: 048
  5. LIOTHYRONINE [Concomitant]
     Active Substance: LIOTHYRONINE
     Dosage: UNK
     Route: 065
  6. ACYCLOVIR [ACICLOVIR] [Concomitant]
     Active Substance: ACYCLOVIR
     Dosage: UNK
     Route: 048
  7. AZELASTINE. [Concomitant]
     Active Substance: AZELASTINE HYDROCHLORIDE
     Dosage: UNK
     Route: 045
  8. BIOTIN [Concomitant]
     Active Substance: BIOTIN
     Dosage: UNK
     Route: 048
  9. INGREZZA [Suspect]
     Active Substance: VALBENAZINE
     Indication: TARDIVE DYSKINESIA
     Dosage: 40 MILLIGRAM, QD
     Route: 048
     Dates: start: 202105
  10. CALCIUM CITRATE [Concomitant]
     Active Substance: CALCIUM CITRATE
     Dosage: UNK
     Route: 048
  11. DIAZEPAM. [Concomitant]
     Active Substance: DIAZEPAM
     Indication: PRODUCT USED FOR UNKNOWN INDICATION
     Dosage: UNK
     Route: 048
  12. LATANOPROST. [Concomitant]
     Active Substance: LATANOPROST
     Indication: PRODUCT USED FOR UNKNOWN INDICATION
     Dosage: UNK
     Route: 047
  13. LEVOTHYROXINE. [Concomitant]
     Active Substance: LEVOTHYROXINE
     Dosage: UNK
     Route: 065
  14. VITAMIN D3 [Concomitant]
     Active Substance: CHOLECALCIFEROL
     Dosage: UNK
     Route: 065
  15. CETIRIZINE [Concomitant]
     Active Substance: CETIRIZINE HYDROCHLORIDE
     Dosage: UNK
     Route: 048

REACTIONS (3)
  - Drug ineffective [Unknown]
  - Increased appetite [Recovered/Resolved]
  - Fatigue [Recovered/Resolved]

NARRATIVE: CASE EVENT DATE: 2021
